FAERS Safety Report 7597178-8 (Version None)
Quarter: 2011Q3

REPORT INFORMATION
  Report Type: 
  Country: None (occurrence: None)
  Receive Date: 20110708
  Receipt Date: 20100706
  Transmission Date: 20111222
  Serious: No
  Sender: FDA-Public Use
  Company Number: US-GLAXOSMITHKLINE-A0870251A

PATIENT
  Age: 64 Year
  Sex: Female

DRUGS (1)
  1. FLOVENT [Suspect]
     Indication: LUNG DISORDER
     Dosage: 220MCG UNKNOWN
     Route: 055
     Dates: start: 20060101

REACTIONS (1)
  - MALAISE [None]
